FAERS Safety Report 9307332 (Version 2)
Quarter: 2013Q3

REPORT INFORMATION
  Report Type: Spontaneous
  Country: IT (occurrence: IT)
  Receive Date: 20130524
  Receipt Date: 20130711
  Transmission Date: 20140515
  Serious: Yes (Hospitalization)
  Sender: FDA-Public Use
  Company Number: IT-ROCHE-1227722

PATIENT
  Age: 42 Year
  Sex: Female

DRUGS (7)
  1. RIVOTRIL [Suspect]
     Indication: PRODUCT USED FOR UNKNOWN INDICATION
     Route: 048
     Dates: start: 20130401, end: 20130401
  2. CALCITRIOL [Concomitant]
  3. CALCIUM CARBONATE [Concomitant]
  4. EUTIROX [Concomitant]
  5. CONTRAMAL [Concomitant]
  6. INDOXEN [Concomitant]
  7. OMEPRAZOLE [Concomitant]

REACTIONS (4)
  - Acute respiratory failure [Recovered/Resolved]
  - Sopor [Recovered/Resolved]
  - Drug abuse [Unknown]
  - Intentional self-injury [Unknown]
